FAERS Safety Report 14781511 (Version 1)
Quarter: 2018Q2

REPORT INFORMATION
  Report Type: Spontaneous
  Country: FR (occurrence: FR)
  Receive Date: 20180419
  Receipt Date: 20180419
  Transmission Date: 20180711
  Serious: Yes (Other)
  Sender: FDA-Public Use
  Company Number: FR-MERCK KGAA-2046101

PATIENT
  Age: 57 Year
  Sex: Female

DRUGS (1)
  1. NOVOTHYROX [Suspect]
     Active Substance: LEVOTHYROXINE SODIUM
     Indication: PRODUCT USED FOR UNKNOWN INDICATION

REACTIONS (24)
  - Eye irritation [None]
  - Visual impairment [None]
  - Gait disturbance [None]
  - Fatigue [None]
  - Impaired driving ability [None]
  - Insomnia [None]
  - Asthenia [None]
  - Social avoidant behaviour [None]
  - Thyroxine free increased [None]
  - Alopecia [None]
  - Arthralgia [None]
  - Fall [None]
  - Pain [None]
  - Foot deformity [None]
  - Amnesia [None]
  - Muscle spasms [None]
  - Malaise [None]
  - Blood thyroid stimulating hormone increased [None]
  - Loss of personal independence in daily activities [None]
  - Finger deformity [None]
  - Balance disorder [None]
  - Headache [None]
  - Dizziness [None]
  - Serum ferritin increased [None]

NARRATIVE: CASE EVENT DATE: 2017
